FAERS Safety Report 11769700 (Version 1)
Quarter: 2015Q4

REPORT INFORMATION
  Report Type: Spontaneous
  Country: ZA (occurrence: ZA)
  Receive Date: 20151123
  Receipt Date: 20151123
  Transmission Date: 20160304
  Serious: Yes (Other)
  Sender: FDA-Public Use
  Company Number: ZA-PFIZER INC-2015397476

PATIENT
  Age: 31 Year
  Sex: Female

DRUGS (1)
  1. XANOR [Suspect]
     Active Substance: ALPRAZOLAM
     Dosage: UNK
     Dates: start: 2013, end: 2013

REACTIONS (5)
  - Hyperthyroidism [Not Recovered/Not Resolved]
  - Frontal lobe epilepsy [Not Recovered/Not Resolved]
  - Dizziness [Not Recovered/Not Resolved]
  - Drug hypersensitivity [Not Recovered/Not Resolved]
  - Temporal lobe epilepsy [Not Recovered/Not Resolved]
